FAERS Safety Report 10855982 (Version 1)
Quarter: 2015Q1

REPORT INFORMATION
  Report Type: Spontaneous
  Country: US (occurrence: None)
  Receive Date: 20150218
  Receipt Date: 20150218
  Transmission Date: 20150721
  Serious: Yes (Disabling)
  Sender: FDA-Public Use
  Company Number: None

PATIENT
  Age: 61 Year
  Sex: Male
  Weight: 77.11 kg

DRUGS (1)
  1. CEFTIN [Suspect]
     Active Substance: CEFUROXIME AXETIL
     Indication: UPPER RESPIRATORY TRACT INFECTION
     Dates: start: 20141118, end: 20141119

REACTIONS (3)
  - Chest discomfort [None]
  - Insomnia [None]
  - Feeling abnormal [None]

NARRATIVE: CASE EVENT DATE: 20141118
